FAERS Safety Report 7916510-6 (Version None)
Quarter: 2011Q4

REPORT INFORMATION
  Report Type: 
  Country: None (occurrence: None)
  Receive Date: 20111116
  Receipt Date: 20110406
  Transmission Date: 20120403
  Serious: No
  Sender: FDA-Public Use
  Company Number: US-BAYER-2011-030007

PATIENT
  Age: 65 Year
  Sex: Female

DRUGS (1)
  1. CLIMARA PRO [Suspect]
     Indication: HOT FLUSH
     Dosage: UNK
     Dates: start: 20020101

REACTIONS (2)
  - FALL [None]
  - LOWER LIMB FRACTURE [None]
